FAERS Safety Report 5208694-8 (Version None)
Quarter: 2007Q1

REPORT INFORMATION
  Report Type: 
  Country: None (occurrence: None)
  Receive Date: 20070116
  Receipt Date: 20070104
  Transmission Date: 20070707
  Serious: Yes (Disabling, Other)
  Sender: FDA-Public Use
  Company Number: CA-JNJFOC-20061205781

PATIENT
  Sex: Male
  Weight: 93 kg

DRUGS (4)
  1. LEVAQUIN [Suspect]
     Indication: PNEUMONIA
     Route: 042
     Dates: start: 20061215, end: 20061218
  2. METRONIDAZOLE [Concomitant]
     Indication: PNEUMONIA ASPIRATION
     Route: 042
  3. LANSAPRAZOLE [Concomitant]
     Indication: GASTROOESOPHAGEAL REFLUX DISEASE
     Route: 048
  4. GRAVEL [Concomitant]
     Indication: NAUSEA
     Route: 048

REACTIONS (3)
  - DELIRIUM [None]
  - HALLUCINATION [None]
  - PSYCHOTIC DISORDER [None]
